FAERS Safety Report 4729380-4 (Version None)
Quarter: 2005Q3

REPORT INFORMATION
  Report Type: 
  Country: None (occurrence: None)
  Receive Date: 20050729
  Receipt Date: 20050725
  Transmission Date: 20060218
  Serious: Yes (Other)
  Sender: FDA-Public Use
  Company Number: PHEH2005US08202

PATIENT
  Age: 79 Year
  Sex: Male

DRUGS (15)
  1. ZELNORM [Suspect]
     Dosage: 6 MG, TOTAL OF TWO DOSES
     Route: 048
     Dates: start: 20050722, end: 20050723
  2. INSULIN [Concomitant]
  3. OMEPRAZOLE [Concomitant]
  4. DILTIAZEM [Concomitant]
  5. IBUPROFEN [Concomitant]
  6. GABAPENTIN [Concomitant]
  7. ATENOLOL [Concomitant]
  8. FUROSEMIDE [Concomitant]
  9. SIMVASTATIN [Concomitant]
  10. AMITRIPTYLINE HCL [Concomitant]
  11. FLORETINE [Concomitant]
  12. VITAMIN E [Concomitant]
  13. ASCORBIC ACID [Concomitant]
  14. VITAMIN D [Concomitant]
  15. MULTIVITAMINS WITH MINERALS [Concomitant]

REACTIONS (5)
  - ARTHRALGIA [None]
  - ASTHENIA [None]
  - HYPOKALAEMIA [None]
  - RETCHING [None]
  - STOMACH DISCOMFORT [None]
